FAERS Safety Report 15542737 (Version 1)
Quarter: 2018Q4

REPORT INFORMATION
  Report Type: Spontaneous
  Country: US (occurrence: US)
  Receive Date: 20181017
  Receipt Date: 20181017
  Transmission Date: 20190205
  Serious: No
  Sender: FDA-Public Use
  Company Number: None

PATIENT
  Age: 71 Year
  Sex: Female

DRUGS (1)
  1. EPCLUSA [Suspect]
     Active Substance: SOFOSBUVIR\VELPATASVIR
     Indication: HEPATITIS C
     Dosage: ?          OTHER DOSE:400-100MG ;?
     Route: 048

REACTIONS (4)
  - Nausea [None]
  - Weight decreased [None]
  - Decreased appetite [None]
  - Headache [None]

NARRATIVE: CASE EVENT DATE: 20181016
